FAERS Safety Report 11190257 (Version 1)
Quarter: 2015Q2

REPORT INFORMATION
  Report Type: Spontaneous
  Country: US (occurrence: None)
  Receive Date: 20150603
  Receipt Date: 20150603
  Transmission Date: 20150821
  Serious: Yes (Other)
  Sender: FDA-Public Use
  Company Number: FK201405329

PATIENT
  Age: 69 Year
  Sex: Female

DRUGS (2)
  1. HEPARIN [Concomitant]
     Active Substance: HEPARIN SODIUM
  2. PROTAMINE SULFATE. [Suspect]
     Active Substance: PROTAMINE SULFATE
     Indication: ANGIOGRAM
     Dosage: 5 MG, ONCE, INTRAVENOUS BOLUS
     Route: 040
     Dates: start: 20141104, end: 20141104

REACTIONS (1)
  - Hypotension [None]

NARRATIVE: CASE EVENT DATE: 20141104
